FAERS Safety Report 24688581 (Version 4)
Quarter: 2024Q4

REPORT INFORMATION
  Report Type: Spontaneous
  Country: AT (occurrence: AT)
  Receive Date: 20241202
  Receipt Date: 20241223
  Transmission Date: 20250115
  Serious: Yes (Death, Hospitalization)
  Sender: TAKEDA
  Company Number: AT-TEVA-VS-3267514

PATIENT
  Age: 75 Year
  Sex: Male

DRUGS (20)
  1. VELCADE [Suspect]
     Active Substance: BORTEZOMIB
     Indication: Encephalomyelitis
     Dosage: UNK
  2. VELCADE [Suspect]
     Active Substance: BORTEZOMIB
     Indication: Immune-mediated neurological disorder
  3. METHOTREXATE [Suspect]
     Active Substance: METHOTREXATE
     Indication: Encephalomyelitis
     Dosage: UNK
  4. METHOTREXATE [Suspect]
     Active Substance: METHOTREXATE
     Indication: Immune-mediated neurological disorder
  5. DIAZEPAM [Suspect]
     Active Substance: DIAZEPAM
     Indication: Sedation
     Dosage: UNK
  6. DEXMEDETOMIDINE [Suspect]
     Active Substance: DEXMEDETOMIDINE
     Indication: Sedation
     Dosage: UNK
  7. ISOFLURANE [Suspect]
     Active Substance: ISOFLURANE
     Indication: Sedation
     Dosage: UNK
  8. SUFENTANIL [Suspect]
     Active Substance: SUFENTANIL
     Indication: Sedation
     Dosage: UNK
  9. PROPOFOL [Suspect]
     Active Substance: PROPOFOL
     Indication: Sedation
     Dosage: UNK
  10. CYCLOPHOSPHAMIDE [Suspect]
     Active Substance: CYCLOPHOSPHAMIDE
     Indication: Encephalomyelitis
     Dosage: UNK
  11. CYCLOPHOSPHAMIDE [Suspect]
     Active Substance: CYCLOPHOSPHAMIDE
     Indication: Immune-mediated neurological disorder
  12. METHYLPREDNISOLONE [Suspect]
     Active Substance: METHYLPREDNISOLONE
     Indication: Encephalomyelitis
     Dosage: UNK
  13. METHYLPREDNISOLONE [Suspect]
     Active Substance: METHYLPREDNISOLONE
     Indication: Immune-mediated neurological disorder
  14. BACLOFEN [Concomitant]
     Active Substance: BACLOFEN
     Indication: Encephalomyelitis
     Dosage: UNK
  15. BACLOFEN [Concomitant]
     Active Substance: BACLOFEN
     Indication: Immune-mediated neurological disorder
  16. TIAPRIDE [Concomitant]
     Active Substance: TIAPRIDE
     Indication: Encephalomyelitis
     Dosage: UNK
  17. TIAPRIDE [Concomitant]
     Active Substance: TIAPRIDE
     Indication: Immune-mediated neurological disorder
  18. DRONABINOL [Concomitant]
     Active Substance: DRONABINOL
     Indication: Encephalomyelitis
     Dosage: UNK
  19. DRONABINOL [Concomitant]
     Active Substance: DRONABINOL
     Indication: Immune-mediated neurological disorder
  20. TRYPTOPHAN [Concomitant]
     Active Substance: TRYPTOPHAN
     Indication: Immunoadsorption therapy
     Dosage: UNK

REACTIONS (4)
  - Rebound effect [Fatal]
  - Drug ineffective [Fatal]
  - Autonomic nervous system imbalance [Fatal]
  - Agitation [Fatal]
